FAERS Safety Report 4978185-8 (Version None)
Quarter: 2006Q2

REPORT INFORMATION
  Report Type: 
  Country: None (occurrence: None)
  Receive Date: 20060420
  Receipt Date: 20060410
  Transmission Date: 20061013
  Serious: Yes (Hospitalization)
  Sender: FDA-Public Use
  Company Number: FR-ROCHE-443988

PATIENT
  Age: 57 Year
  Sex: Female

DRUGS (2)
  1. LOXEN [Suspect]
     Indication: HYPERTENSION
     Route: 048
     Dates: start: 20050216
  2. LOPRIL [Suspect]
     Indication: HYPERTENSION
     Route: 048
     Dates: end: 20060215

REACTIONS (5)
  - CEREBRAL INFARCTION [None]
  - CEREBROVASCULAR ACCIDENT [None]
  - DRUG INTOLERANCE [None]
  - FATIGUE [None]
  - MALAISE [None]
